FAERS Safety Report 16787224 (Version 1)
Quarter: 2019Q3

REPORT INFORMATION
  Report Type: Spontaneous
  Country: US (occurrence: US)
  Receive Date: 20190909
  Receipt Date: 20190909
  Transmission Date: 20191005
  Serious: No
  Sender: FDA-Public Use
  Company Number: US-SA-2019SA250667

PATIENT
  Age: 32 Year
  Sex: Male

DRUGS (11)
  1. PROAIR HFA [Concomitant]
     Active Substance: ALBUTEROL SULFATE
  2. QNASL [Concomitant]
     Active Substance: BECLOMETHASONE DIPROPIONATE
  3. SYMBICORT [Concomitant]
     Active Substance: BUDESONIDE\FORMOTEROL FUMARATE DIHYDRATE
  4. PANTOPRAZOLE SODIUM. [Concomitant]
     Active Substance: PANTOPRAZOLE SODIUM
  5. PREDNISONE. [Concomitant]
     Active Substance: PREDNISONE
  6. SUCRALFATE. [Concomitant]
     Active Substance: SUCRALFATE
  7. RANITIDINE. [Concomitant]
     Active Substance: RANITIDINE
  8. AMOXICILLIN;CLAVULANATE POTASSIUM [Concomitant]
     Active Substance: AMOXICILLIN\CLAVULANATE POTASSIUM
  9. LEVOFLOXACIN. [Concomitant]
     Active Substance: LEVOFLOXACIN
  10. DUPIXENT [Suspect]
     Active Substance: DUPILUMAB
     Indication: ASTHMA
     Dosage: 300 MG, QOW
     Route: 058
     Dates: start: 20190809
  11. MULTIVITAMINS [VITAMINS NOS] [Concomitant]
     Active Substance: VITAMINS

REACTIONS (2)
  - Rib fracture [Unknown]
  - Cough [Unknown]

NARRATIVE: CASE EVENT DATE: 201908
